FAERS Safety Report 5121029-4 (Version None)
Quarter: 2006Q4

REPORT INFORMATION
  Report Type: 
  Country: None (occurrence: None)
  Receive Date: 20061005
  Receipt Date: 20061003
  Transmission Date: 20070319
  Serious: Yes (Disabling, Other)
  Sender: FDA-Public Use
  Company Number: US-MERCK-0610USA01587

PATIENT
  Age: 57 Year
  Sex: Female
  Weight: 73 kg

DRUGS (7)
  1. SINGULAIR [Suspect]
     Indication: RHINITIS ALLERGIC
     Route: 048
     Dates: start: 19990101
  2. SINGULAIR [Suspect]
     Indication: ASTHMA
     Route: 048
     Dates: start: 19990101
  3. LEVOTHYROXINE SODIUM [Concomitant]
     Indication: RHINITIS ALLERGIC
     Route: 048
  4. LEVOTHYROXINE SODIUM [Concomitant]
     Indication: ASTHMA
     Route: 048
  5. MUCINEX [Concomitant]
     Route: 065
  6. FLOVENT [Concomitant]
     Route: 055
  7. COMBIVENT [Concomitant]
     Route: 055

REACTIONS (2)
  - RETINAL TEAR [None]
  - VITREOUS HAEMORRHAGE [None]
